FAERS Safety Report 9538607 (Version 1)
Quarter: 2013Q2

REPORT INFORMATION
  Report Type: Spontaneous
  Country: US (occurrence: None)
  Receive Date: 20130517
  Receipt Date: 20130517
  Transmission Date: 20140414
  Serious: Yes (Other)
  Sender: FDA-Public Use
  Company Number: 1000042356

PATIENT
  Sex: 0

DRUGS (1)
  1. VIIBRYD [Suspect]
     Indication: DEPRESSION

REACTIONS (2)
  - Nausea [None]
  - Vomiting [None]
